FAERS Safety Report 9754017 (Version 1)
Quarter: 2013Q4

REPORT INFORMATION
  Report Type: Spontaneous
  Country: US (occurrence: US)
  Receive Date: 20131213
  Receipt Date: 20131213
  Transmission Date: 20140711
  Serious: No
  Sender: FDA-Public Use
  Company Number: US-GLAXOSMITHKLINE-A1008184A

PATIENT
  Age: 68 Year
  Sex: Male

DRUGS (7)
  1. WALGREENS LOZENGE ORIGINAL 2 MG [Suspect]
     Indication: TOBACCO ABUSE
     Route: 048
  2. NICOTINE [Suspect]
     Indication: TOBACCO ABUSE
     Route: 048
  3. FUROSEMIDE [Concomitant]
  4. WARFARIN [Concomitant]
  5. ADVAIR [Concomitant]
  6. DILTIAZEM [Concomitant]
  7. UNKNOWN MEDICATION [Concomitant]

REACTIONS (3)
  - Intentional drug misuse [Not Recovered/Not Resolved]
  - Blood calcium increased [Not Recovered/Not Resolved]
  - Drug administration error [Unknown]
